FAERS Safety Report 14518462 (Version 2)
Quarter: 2018Q1

REPORT INFORMATION
  Report Type: Report from Study
  Country: US (occurrence: US)
  Receive Date: 20180212
  Receipt Date: 20180305
  Transmission Date: 20180509
  Serious: Yes (Hospitalization, Other)
  Sender: FDA-Public Use
  Company Number: US-MYLANLABS-2018M1008315

PATIENT
  Age: 24 Year
  Sex: Male
  Weight: 78.46 kg

DRUGS (21)
  1. LITHIUM. [Suspect]
     Active Substance: LITHIUM
     Indication: PRODUCT USED FOR UNKNOWN INDICATION
     Dosage: 1200 MG, QD
     Dates: start: 20180109
  2. SEROQUEL [Suspect]
     Active Substance: QUETIAPINE FUMARATE
     Dosage: 150 MG, HS
     Dates: start: 20180110
  3. SEROQUEL [Suspect]
     Active Substance: QUETIAPINE FUMARATE
     Dosage: 50 MG, UNK
     Dates: start: 20180111
  4. CLOZAPINE. [Suspect]
     Active Substance: CLOZAPINE
     Indication: PSYCHOTIC DISORDER
     Dosage: 25 MG, HS
     Route: 048
     Dates: start: 20180112
  5. LITHIUM. [Suspect]
     Active Substance: LITHIUM
     Dosage: 1200 MG, QD
     Dates: start: 20180110
  6. SEROQUEL [Suspect]
     Active Substance: QUETIAPINE FUMARATE
     Dosage: 200 MG, HS
     Dates: start: 20180111
  7. SEROQUEL [Suspect]
     Active Substance: QUETIAPINE FUMARATE
     Dosage: 50 MG, UNK
     Dates: start: 20180112
  8. HALDOL [Suspect]
     Active Substance: HALOPERIDOL
     Dosage: 10 MG, Q4H
     Dates: start: 20180110
  9. BENADRYL [Suspect]
     Active Substance: DIPHENHYDRAMINE HYDROCHLORIDE
     Indication: PRODUCT USED FOR UNKNOWN INDICATION
     Dosage: 50 MG, UNK
     Dates: start: 20180109
  10. LITHIUM. [Suspect]
     Active Substance: LITHIUM
     Dosage: 1200 MG, QD
     Dates: start: 20180112
  11. SEROQUEL [Suspect]
     Active Substance: QUETIAPINE FUMARATE
     Dosage: 50 MG, UNK
     Dates: start: 20180111
  12. HALDOL [Suspect]
     Active Substance: HALOPERIDOL
     Indication: PRODUCT USED FOR UNKNOWN INDICATION
     Dosage: 10 MG, Q4H
     Dates: start: 20180109
  13. SEROQUEL [Suspect]
     Active Substance: QUETIAPINE FUMARATE
     Dosage: UNK
     Dates: start: 20180111
  14. SEROQUEL [Suspect]
     Active Substance: QUETIAPINE FUMARATE
     Dosage: 200 MG, UNK
     Dates: start: 20180112
  15. CLOZAPINE. [Suspect]
     Active Substance: CLOZAPINE
     Indication: PSYCHOMOTOR HYPERACTIVITY
  16. SEROQUEL [Suspect]
     Active Substance: QUETIAPINE FUMARATE
     Indication: PRODUCT USED FOR UNKNOWN INDICATION
     Dosage: 150 MG, HS
     Route: 048
     Dates: start: 20180109
  17. SEROQUEL [Suspect]
     Active Substance: QUETIAPINE FUMARATE
     Dosage: 50 MG, UNK
     Dates: start: 20180112
  18. BENADRYL [Suspect]
     Active Substance: DIPHENHYDRAMINE HYDROCHLORIDE
     Dosage: 50 MG, PRN
     Dates: start: 20180112
  19. HALDOL [Suspect]
     Active Substance: HALOPERIDOL
     Dosage: 10 MG, PRN
     Dates: start: 20180112
  20. SEROQUEL [Suspect]
     Active Substance: QUETIAPINE FUMARATE
     Dosage: UNK
     Dates: start: 20180111
  21. ATIVAN [Suspect]
     Active Substance: LORAZEPAM
     Indication: PRODUCT USED FOR UNKNOWN INDICATION
     Dosage: UNK, PRN
     Dates: start: 20180109

REACTIONS (3)
  - Imprisonment [Unknown]
  - Product use in unapproved indication [Unknown]
  - Drug ineffective [Unknown]

NARRATIVE: CASE EVENT DATE: 201801
